FAERS Safety Report 5966238-7 (Version None)
Quarter: 2008Q4

REPORT INFORMATION
  Report Type: 
  Country: None (occurrence: None)
  Receive Date: 20081125
  Receipt Date: 20081120
  Transmission Date: 20090506
  Serious: Yes (Disabling, Other)
  Sender: FDA-Public Use
  Company Number: US-PURDUE-USA_2008_0036013

PATIENT
  Age: 87 Year
  Sex: Female

DRUGS (1)
  1. OXYCONTIN [Suspect]
     Indication: ARTHRALGIA

REACTIONS (7)
  - ABASIA [None]
  - APHASIA [None]
  - COMA [None]
  - CONVULSION [None]
  - DRUG WITHDRAWAL SYNDROME [None]
  - DYSSTASIA [None]
  - MALAISE [None]
